FAERS Safety Report 4409874-1 (Version None)
Quarter: 2004Q3

REPORT INFORMATION
  Report Type: 
  Country: None (occurrence: None)
  Receive Date: 20040723
  Receipt Date: 20040713
  Transmission Date: 20050211
  Serious: Yes (Hospitalization)
  Sender: FDA-Public Use
  Company Number: 04-07-1014

PATIENT
  Age: 70 Year
  Sex: Female

DRUGS (13)
  1. QVAR [Suspect]
     Indication: ASTHMA
     Dosage: 2 PUFFS BID INHALATION
     Route: 055
     Dates: start: 20040219, end: 20040225
  2. QVAR [Suspect]
     Indication: CHRONIC OBSTRUCTIVE AIRWAYS DISEASE
     Dosage: 2 PUFFS BID INHALATION
     Route: 055
     Dates: start: 20040219, end: 20040225
  3. THEOPHYLLINE [Concomitant]
  4. ALBUTEROL SULFATE [Concomitant]
  5. SYNTHROID [Concomitant]
  6. NITRO PATCH [Concomitant]
  7. FLONASE [Concomitant]
  8. XALATAN [Concomitant]
  9. PREVACID [Concomitant]
  10. PRAVACHOL [Concomitant]
  11. VAGIFEM [Concomitant]
  12. ESTRACE [Concomitant]
  13. ASPIRIN [Concomitant]

REACTIONS (5)
  - BACK PAIN [None]
  - BLOOD PRESSURE INCREASED [None]
  - DYSPNOEA [None]
  - FEELING ABNORMAL [None]
  - HEADACHE [None]
